FAERS Safety Report 11291709 (Version 1)
Quarter: 2015Q3

REPORT INFORMATION
  Report Type: Spontaneous
  Country: US (occurrence: None)
  Receive Date: 20150721
  Receipt Date: 20150721
  Transmission Date: 20151125
  Serious: Yes (Hospitalization)
  Sender: FDA-Public Use
  Company Number: None

PATIENT
  Age: 66 Year
  Sex: Male
  Weight: 79.1 kg

DRUGS (1)
  1. IRON SUCROSE [Suspect]
     Active Substance: IRON SUCROSE
     Dates: start: 20150312, end: 20150312

REACTIONS (3)
  - Abdominal discomfort [None]
  - Drug intolerance [None]
  - Anaphylactic reaction [None]

NARRATIVE: CASE EVENT DATE: 20150312
